FAERS Safety Report 9156552 (Version 2)
Quarter: 2013Q1

REPORT INFORMATION
  Report Type: Spontaneous
  Country: US (occurrence: US)
  Receive Date: 20130312
  Receipt Date: 20130325
  Transmission Date: 20140127
  Serious: Yes (Other)
  Sender: FDA-Public Use
  Company Number: US-PFIZER INC-2013079134

PATIENT
  Age: 69 Year
  Sex: Female
  Weight: 52.15 kg

DRUGS (2)
  1. PREMARIN [Suspect]
     Indication: VULVOVAGINAL DRYNESS
     Dosage: UNK
     Route: 067
     Dates: end: 201106
  2. ZOLOFT [Concomitant]
     Dosage: UNK

REACTIONS (5)
  - Bladder prolapse [Unknown]
  - Vaginal prolapse [Unknown]
  - Hypersensitivity [Unknown]
  - Swelling [Unknown]
  - Burning sensation [Unknown]
